FAERS Safety Report 4337063-8 (Version None)
Quarter: 2004Q1

REPORT INFORMATION
  Report Type: 
  Country: None (occurrence: None)
  Receive Date: 20040329
  Receipt Date: 20031126
  Transmission Date: 20041129
  Serious: No
  Sender: FDA-Public Use
  Company Number: USA031253533

PATIENT
  Age: 31 Year
  Sex: Female
  Weight: 93 kg

DRUGS (3)
  1. STRATTERA [Suspect]
     Dosage: 40 MG/DAY
     Dates: start: 20031125
  2. XANAX [Concomitant]
  3. LEXAPRO [Concomitant]

REACTIONS (2)
  - FEELING ABNORMAL [None]
  - NAUSEA [None]
